FAERS Safety Report 7533237-3 (Version None)
Quarter: 2011Q2

REPORT INFORMATION
  Report Type: 
  Country: None (occurrence: None)
  Receive Date: 20110608
  Receipt Date: 20030910
  Transmission Date: 20111010
  Serious: Yes (Hospitalization, Disabling)
  Sender: FDA-Public Use
  Company Number: PHHO2003JP11474

PATIENT
  Sex: Male
  Weight: 61 kg

DRUGS (5)
  1. TICLOPIDINE HCL [Concomitant]
     Dosage: 100 MG, UNK
     Route: 048
     Dates: start: 20010128, end: 20010724
  2. ARICEPT [Concomitant]
     Indication: DEMENTIA ALZHEIMER'S TYPE
     Dosage: 5 MG, UNK
     Route: 048
     Dates: start: 20010113, end: 20010723
  3. DOXAZOSIN MESYLATE [Concomitant]
     Indication: HYPERTENSION
     Dosage: 1 MG, UNK
     Route: 048
     Dates: start: 20010210, end: 20010724
  4. DIOVAN [Suspect]
     Indication: HYPERTENSION
     Dosage: 80 MG, QD
     Route: 048
     Dates: start: 20010225, end: 20030724
  5. HYPOCA [Concomitant]
     Indication: HYPERTENSION
     Dosage: 15 MG, UNK
     Route: 048
     Dates: start: 20010113, end: 20010724

REACTIONS (2)
  - HEMIPLEGIA [None]
  - CEREBRAL INFARCTION [None]
